FAERS Safety Report 5856562-0 (Version None)
Quarter: 2008Q3

REPORT INFORMATION
  Report Type: 
  Country: None (occurrence: None)
  Receive Date: 20080822
  Receipt Date: 20080822
  Transmission Date: 20090109
  Serious: Yes (Life-Threatening, Hospitalization)
  Sender: FDA-Public Use
  Company Number: None

PATIENT
  Age: 61 Year
  Sex: Female
  Weight: 65.318 kg

DRUGS (1)
  1. LISINOPRIL [Suspect]
     Indication: HYPERTENSION
     Dosage: 5 MILLIGRAMS ONCE A DAY ORAL
     Route: 048
     Dates: start: 20080711, end: 20080727

REACTIONS (14)
  - ARTHRALGIA [None]
  - DIZZINESS [None]
  - DYSGEUSIA [None]
  - GASTRIC DISORDER [None]
  - LIP SWELLING [None]
  - MYALGIA [None]
  - OESOPHAGEAL DISORDER [None]
  - OROPHARYNGEAL PAIN [None]
  - PAIN [None]
  - PRESYNCOPE [None]
  - SWELLING [None]
  - SWELLING FACE [None]
  - SWOLLEN TONGUE [None]
  - THROAT IRRITATION [None]
